FAERS Safety Report 8279322-2 (Version None)
Quarter: 2012Q2

REPORT INFORMATION
  Report Type: 
  Country: None (occurrence: None)
  Receive Date: 20120412
  Receipt Date: 20110928
  Transmission Date: 20120825
  Serious: No
  Sender: FDA-Public Use
  Company Number: US-ASTRAZENECA-2010SE38064

PATIENT
  Age: 58 Year
  Sex: Female

DRUGS (9)
  1. PROAIR HFA [Concomitant]
  2. FLUTICASONE PROPIONATE [Concomitant]
  3. PROMETHAZINE [Concomitant]
  4. SYNTHROID [Concomitant]
  5. MOBIC [Concomitant]
  6. ATIVAN [Concomitant]
  7. NEXIUM [Suspect]
     Route: 048
  8. CYCLOBENAZPRINE [Concomitant]
  9. VICODIN [Concomitant]

REACTIONS (23)
  - RESPIRATORY TRACT INFECTION [None]
  - MALAISE [None]
  - DYSPNOEA EXERTIONAL [None]
  - HELICOBACTER INFECTION [None]
  - MIGRAINE [None]
  - MENOPAUSAL SYMPTOMS [None]
  - HYPOTHYROIDISM [None]
  - BLOOD CHOLESTEROL INCREASED [None]
  - BREAST ENLARGEMENT [None]
  - ULCER [None]
  - DRUG DOSE OMISSION [None]
  - COUGH [None]
  - PRODUCTIVE COUGH [None]
  - ASTHMA [None]
  - OSTEOPENIA [None]
  - GASTROOESOPHAGEAL REFLUX DISEASE [None]
  - DYSPNOEA [None]
  - FALL [None]
  - ARTHRITIS [None]
  - MENOPAUSAL DISORDER [None]
  - CATARACT [None]
  - BRONCHITIS [None]
  - VITAMIN D DECREASED [None]
